FAERS Safety Report 4587273-X (Version None)
Quarter: 2005Q1

REPORT INFORMATION
  Report Type: 
  Country: None (occurrence: None)
  Receive Date: 20050215
  Receipt Date: 20050202
  Transmission Date: 20050727
  Serious: Yes (Hospitalization)
  Sender: FDA-Public Use
  Company Number: 2004111380

PATIENT
  Age: 79 Year
  Sex: Male

DRUGS (7)
  1. DIFLUCAN [Suspect]
     Indication: PYREXIA
     Dosage: 100 MG (1 D), ORAL
     Route: 048
     Dates: start: 20041013, end: 20041026
  2. DIFLUCAN [Suspect]
     Indication: FUNGAEMIA
     Dosage: 200 MG (1 IN 1 D), INTRAVENOUS
     Route: 042
     Dates: start: 20041117, end: 20041210
  3. FAMOTIDINE [Concomitant]
  4. TICLOPIDINE HCL [Concomitant]
  5. CEFTRIAXONE [Concomitant]
  6. ISOSORBIDE MONONITRATE [Concomitant]
  7. NICORANDIL                 (NICORANDIL) [Concomitant]

REACTIONS (3)
  - HAEMATEMESIS [None]
  - HAEMOPTYSIS [None]
  - INTERSTITIAL LUNG DISEASE [None]
